FAERS Safety Report 8538909-X (Version None)
Quarter: 2012Q3

REPORT INFORMATION
  Report Type: 
  Country: None (occurrence: None)
  Receive Date: 20120726
  Receipt Date: 20120717
  Transmission Date: 20120928
  Serious: Yes (Other)
  Sender: FDA-Public Use
  Company Number: JP-JNJFOC-20120708487

PATIENT
  Sex: Male

DRUGS (5)
  1. DOXORUBICIN HYDROCHLORIDE [Suspect]
     Indication: ACUTE LYMPHOCYTIC LEUKAEMIA
     Dosage: FIVE COURSES, GIVEN FOR 10 MONTHS
     Route: 042
  2. CYCLOPHOSPHAMIDE [Suspect]
     Indication: ACUTE LYMPHOCYTIC LEUKAEMIA
     Dosage: FIVE COURSES, GIVEN FOR 10 MONTHS
     Route: 065
  3. RITUXIMAB [Suspect]
     Indication: ACUTE LYMPHOCYTIC LEUKAEMIA
     Dosage: 5 COURSES GIVEN FOR 10 MONTHS
     Route: 065
  4. PREDNISONE [Suspect]
     Indication: ACUTE LYMPHOCYTIC LEUKAEMIA
     Dosage: FIVE COURSES, GIVEN FOR 10 MONTHS
     Route: 065
  5. VINCRISTINE [Suspect]
     Indication: ACUTE LYMPHOCYTIC LEUKAEMIA
     Dosage: FIVE COURSES, GIVEN FOR 10 MONTHS
     Route: 065

REACTIONS (3)
  - ONCOLOGIC COMPLICATION [None]
  - BONE MARROW FAILURE [None]
  - NERVOUS SYSTEM DISORDER [None]
